FAERS Safety Report 6932862-8 (Version None)
Quarter: 2010Q3

REPORT INFORMATION
  Report Type: 
  Country: None (occurrence: None)
  Receive Date: 20100819
  Receipt Date: 20100809
  Transmission Date: 20110219
  Serious: Yes (Hospitalization)
  Sender: FDA-Public Use
  Company Number: GB-WATSON-2010-11008

PATIENT
  Age: 62 Year
  Sex: Female

DRUGS (2)
  1. MONODOX [Suspect]
     Indication: SEPSIS
     Dosage: UNK
  2. METHOTREXATE/CYTARABINE [Suspect]
     Indication: CENTRAL NERVOUS SYSTEM LYMPHOMA
     Dosage: HIGH DOSE

REACTIONS (2)
  - KORSAKOFF'S PSYCHOSIS NON-ALCOHOLIC [None]
  - WERNICKE'S ENCEPHALOPATHY [None]
